FAERS Safety Report 16115142 (Version 2)
Quarter: 2019Q3

REPORT INFORMATION
  Report Type: Spontaneous
  Country: US (occurrence: US)
  Receive Date: 20190325
  Receipt Date: 20190916
  Transmission Date: 20191004
  Serious: Yes (Death, Other)
  Sender: FDA-Public Use
  Company Number: US-PFIZER INC-2019125318

PATIENT
  Age: 47 Year
  Sex: Male
  Weight: 124.74 kg

DRUGS (5)
  1. LYRICA [Suspect]
     Active Substance: PREGABALIN
     Indication: PHANTOM LIMB SYNDROME
     Dosage: 50 MG, UNK
     Route: 048
  2. NORCO [Concomitant]
     Active Substance: ACETAMINOPHEN\HYDROCODONE BITARTRATE
     Dosage: UNK
  3. LYRICA [Suspect]
     Active Substance: PREGABALIN
     Dosage: 100 MG, 2X/DAY [EVERY 12 HOURS]
     Route: 048
     Dates: end: 201807
  4. LANTUS [Concomitant]
     Active Substance: INSULIN GLARGINE
     Indication: DIABETES MELLITUS
     Dosage: 60 IU, 1X/DAY [ONCE AT NIGHT]
  5. HUMALOG [Concomitant]
     Active Substance: INSULIN LISPRO
     Indication: DIABETES MELLITUS
     Dosage: 20 IU, 3X/DAY

REACTIONS (7)
  - Overdose [Fatal]
  - Suicide attempt [Unknown]
  - Product use in unapproved indication [Unknown]
  - Depression [Fatal]
  - Off label use [Unknown]
  - Overdose [Unknown]
  - Completed suicide [Fatal]

NARRATIVE: CASE EVENT DATE: 20180202
